FAERS Safety Report 24847822 (Version 1)
Quarter: 2025Q1

REPORT INFORMATION
  Report Type: Spontaneous
  Country: IT (occurrence: IT)
  Receive Date: 20250116
  Receipt Date: 20250116
  Transmission Date: 20250409
  Serious: Yes (Life-Threatening, Hospitalization, Other)
  Sender: AUROBINDO
  Company Number: IT-MINISAL02-1019206

PATIENT
  Age: 15 Year
  Sex: Female
  Weight: 67 kg

DRUGS (1)
  1. ACETAMINOPHEN [Suspect]
     Active Substance: ACETAMINOPHEN
     Indication: Product used for unknown indication
     Route: 048
     Dates: start: 20241111, end: 20241111

REACTIONS (2)
  - Toxicity to various agents [Recovering/Resolving]
  - Drug abuse [Recovered/Resolved]

NARRATIVE: CASE EVENT DATE: 20241111
